FAERS Safety Report 12777548 (Version 1)
Quarter: 2016Q3

REPORT INFORMATION
  Report Type: Spontaneous
  Country: US (occurrence: US)
  Receive Date: 20160924
  Receipt Date: 20160924
  Transmission Date: 20161109
  Serious: No
  Sender: FDA-Public Use
  Company Number: US-TEVA-663036USA

PATIENT
  Sex: Female

DRUGS (1)
  1. CLONAZEPAM. [Suspect]
     Active Substance: CLONAZEPAM
     Indication: ANXIETY
     Route: 065
     Dates: start: 2011

REACTIONS (7)
  - Somnolence [Recovering/Resolving]
  - Disturbance in attention [Recovering/Resolving]
  - Wrong technique in product usage process [Unknown]
  - Feeling abnormal [Recovering/Resolving]
  - Intentional product use issue [Unknown]
  - Bradyphrenia [Recovering/Resolving]
  - Memory impairment [Recovering/Resolving]
